FAERS Safety Report 11719130 (Version 1)
Quarter: 2015Q4

REPORT INFORMATION
  Report Type: Spontaneous
  Country: US (occurrence: US)
  Receive Date: 20151027
  Receipt Date: 20151027
  Transmission Date: 20160304
  Serious: No
  Sender: FDA-Public Use
  Company Number: US-ELI_LILLY_AND_COMPANY-US201012000235

PATIENT
  Age: 67 Year
  Sex: Female
  Weight: 38.55 kg

DRUGS (9)
  1. FORTEO [Suspect]
     Active Substance: TERIPARATIDE
     Indication: OSTEOPOROSIS
     Dosage: 20 UG, DAILY (1/D)
     Dates: start: 201002
  2. FORTEO [Suspect]
     Active Substance: TERIPARATIDE
     Dosage: 20 UG, DAILY (1/D)
     Dates: end: 20100509
  3. LIPITOR [Concomitant]
     Active Substance: ATORVASTATIN CALCIUM
     Dosage: UNK, WEEKLY (1/W)
  4. FORTEO [Suspect]
     Active Substance: TERIPARATIDE
     Dosage: 20 UG, QOD
     Dates: start: 20100601, end: 20100614
  5. FORTEO [Suspect]
     Active Substance: TERIPARATIDE
     Dosage: UNK, OTHER
     Dates: start: 20100615, end: 20100615
  6. FORTEO [Suspect]
     Active Substance: TERIPARATIDE
     Dosage: 20 UG, QOD
     Dates: start: 201003
  7. FORTEO [Suspect]
     Active Substance: TERIPARATIDE
     Dosage: 20 UG, QOD
     Dates: start: 20100518, end: 20100531
  8. FORTEO [Suspect]
     Active Substance: TERIPARATIDE
     Dosage: 20 UG, DAILY (1/D)
  9. FORTEO [Suspect]
     Active Substance: TERIPARATIDE
     Dosage: 20 UG, OTHER
     Dates: start: 201011

REACTIONS (15)
  - Injection site nodule [Unknown]
  - Feeling abnormal [Unknown]
  - Drug dose omission [Unknown]
  - Injection site erythema [Unknown]
  - Dizziness [Recovered/Resolved]
  - Pain [Not Recovered/Not Resolved]
  - Heart rate increased [Unknown]
  - Arthralgia [Unknown]
  - Pelvic pain [Unknown]
  - Injection site bruising [Unknown]
  - Asthenia [Unknown]
  - Malaise [Unknown]
  - Irritability [Unknown]
  - Discomfort [Unknown]
  - Drug prescribing error [Unknown]

NARRATIVE: CASE EVENT DATE: 201002
